FAERS Safety Report 20426343 (Version 1)
Quarter: 2022Q1

REPORT INFORMATION
  Report Type: Report from Study
  Country: US (occurrence: US)
  Receive Date: 20220204
  Receipt Date: 20220204
  Transmission Date: 20220424
  Serious: No
  Sender: FDA-Public Use
  Company Number: US-EXELIXIS-CABO-21042063

PATIENT
  Sex: Female

DRUGS (2)
  1. CABOMETYX [Suspect]
     Active Substance: CABOZANTINIB S-MALATE
     Indication: Renal cancer
     Dosage: 40 MG, QD
     Route: 048
     Dates: start: 20210604
  2. CABOMETYX [Suspect]
     Active Substance: CABOZANTINIB S-MALATE
     Dosage: 20 MG, QD
     Route: 048
     Dates: start: 202107

REACTIONS (11)
  - Ageusia [Unknown]
  - Blister [Unknown]
  - Dry mouth [Unknown]
  - Decreased appetite [Unknown]
  - Fatigue [Unknown]
  - Dysphonia [Unknown]
  - Blood pressure increased [Unknown]
  - Abdominal pain [Unknown]
  - Weight decreased [Unknown]
  - Headache [Unknown]
  - Dry skin [Unknown]
